FAERS Safety Report 8716211 (Version 3)
Quarter: 2012Q4

REPORT INFORMATION
  Report Type: 
  Country: JP (occurrence: JP)
  Receive Date: 20120809
  Receipt Date: 20121210
  Transmission Date: 20130627
  Serious: Yes (Hospitalization)
  Sender: FDA-Public Use
  Company Number: JP-009507513-1208JPN000385

PATIENT
  Age: 55 Year
  Sex: Female
  Weight: 79 kg

DRUGS (16)
  1. PEGINTRON [Suspect]
     Indication: CHRONIC HEPATITIS C
     Dosage: UNK UNK, qw
     Route: 058
     Dates: start: 20120417, end: 20120522
  2. PEGINTRON [Suspect]
     Dosage: 0.9 Microgram per kilogram, qw
     Route: 058
     Dates: start: 20120523, end: 20120708
  3. PEGINTRON [Suspect]
     Dosage: 1.0 Microgram per kilogram, UNK
     Route: 058
     Dates: start: 20120709
  4. REBETOL [Suspect]
     Indication: CHRONIC HEPATITIS C
     Dosage: 600 mg, qd
     Route: 048
     Dates: start: 20120417, end: 20120508
  5. REBETOL [Suspect]
     Dosage: 400 mg, qd
     Route: 048
     Dates: start: 20120509, end: 20120622
  6. REBETOL [Suspect]
     Dosage: 200 mg, qd
     Route: 048
     Dates: start: 20120630, end: 20120722
  7. REBETOL [Suspect]
     Dosage: 400 mg, qd
     Route: 048
     Dates: start: 20120723
  8. TELAVIC [Suspect]
     Indication: CHRONIC HEPATITIS C
     Dosage: 1500 mg, Once, cumulative dose:13250 mg
     Route: 048
     Dates: start: 20120417, end: 20120424
  9. TELAVIC [Suspect]
     Dosage: 1250 mg, Once
     Route: 048
     Dates: start: 20120425, end: 20120508
  10. TELAVIC [Suspect]
     Dosage: 1500 mg, Once
     Route: 048
     Dates: start: 20120509, end: 20120529
  11. TELAVIC [Suspect]
     Dosage: 1250 mg, Once
     Route: 048
     Dates: start: 20120530, end: 20120603
  12. TELAVIC [Suspect]
     Dosage: 750 mg, qd
     Route: 048
     Dates: start: 20120604, end: 20120617
  13. TELAVIC [Suspect]
     Dosage: 1000 mg,
     Route: 048
     Dates: start: 20120618, end: 20120622
  14. TELAVIC [Suspect]
     Dosage: 750 mg, qd
     Route: 048
     Dates: start: 20120630, end: 20120723
  15. TELAVIC [Suspect]
     Dosage: UNK
  16. CALBLOCK [Concomitant]
     Indication: HYPERTENSION
     Dosage: 8 mg, qd
     Route: 048

REACTIONS (6)
  - Hypokalaemia [Recovering/Resolving]
  - Decreased appetite [None]
  - Blood creatinine increased [None]
  - Blood uric acid increased [None]
  - Glomerular filtration rate decreased [None]
  - Pyrexia [None]
